FAERS Safety Report 9554074 (Version 1)
Quarter: 2013Q3

REPORT INFORMATION
  Report Type: Spontaneous
  Country: US (occurrence: None)
  Receive Date: 20130815
  Receipt Date: 20130815
  Transmission Date: 20140515
  Serious: Yes (Other)
  Sender: FDA-Public Use
  Company Number: ADR-2013-00903

PATIENT
  Age: 57 Year
  Sex: Female

DRUGS (2)
  1. LIORESAL INTRATHECAL [Suspect]
     Indication: MUSCLE SPASTICITY
  2. LIORESAL INTRATHECAL [Suspect]
     Indication: CEREBROVASCULAR ACCIDENT

REACTIONS (2)
  - Muscle spasticity [None]
  - Drug withdrawal syndrome [None]
